FAERS Safety Report 5033335-2 (Version None)
Quarter: 2006Q2

REPORT INFORMATION
  Report Type: 
  Country: None (occurrence: None)
  Receive Date: 20060515
  Receipt Date: 20060224
  Transmission Date: 20061013
  Serious: No
  Sender: FDA-Public Use
  Company Number: S06-USA-00731-01

PATIENT
  Age: 35 Year
  Sex: Female

DRUGS (13)
  1. NAMENDA [Suspect]
     Indication: VASCULAR DEMENTIA
     Dosage: 5 MG QD PO
     Route: 048
     Dates: start: 20060223, end: 20060301
  2. NAMENDA [Suspect]
     Indication: VASCULAR DEMENTIA
     Dosage: 5 MG BID PO
     Route: 048
     Dates: start: 20060302, end: 20060308
  3. NAMENDA [Suspect]
     Indication: VASCULAR DEMENTIA
     Dosage: 15 MG QD PO
     Route: 048
     Dates: start: 20060309
  4. TRILEPTAL [Concomitant]
  5. TOPAMAX [Concomitant]
  6. EFFEXOR [Concomitant]
  7. METFORMIN [Concomitant]
  8. TRAZODONE HCL [Concomitant]
  9. RANITIDINE [Concomitant]
  10. BIRTH CONTROL PILL [Concomitant]
  11. BREATHING TREATMENTS (NOS) [Concomitant]
  12. VITAMIN B12 INJECTIONS [Concomitant]
  13. CYCLOBENZAPRINE HCL [Concomitant]

REACTIONS (3)
  - FACIAL PALSY [None]
  - FEELING ABNORMAL [None]
  - MUSCULAR WEAKNESS [None]
